FAERS Safety Report 10892564 (Version 3)
Quarter: 2015Q2

REPORT INFORMATION
  Report Type: Spontaneous
  Country: US (occurrence: US)
  Receive Date: 20150306
  Receipt Date: 20150414
  Transmission Date: 20150821
  Serious: Yes (Hospitalization, Other)
  Sender: FDA-Public Use
  Company Number: US-PFIZER INC-2015077507

PATIENT
  Age: 77 Year
  Sex: Female

DRUGS (7)
  1. LITHIUM. [Concomitant]
     Active Substance: LITHIUM
     Dosage: 150 ?G, 3X/DAY
     Dates: start: 1980
  2. NAVANE [Suspect]
     Active Substance: THIOTHIXENE
     Indication: BIPOLAR DISORDER
     Dosage: 2 MG, 1X/DAY
     Dates: start: 1980, end: 2011
  3. THIOTHIXENE HCL [Suspect]
     Active Substance: THIOTHIXENE HYDROCHLORIDE
     Indication: BIPOLAR DISORDER
     Dosage: 2 MG, 1X/DAY
     Dates: start: 2011, end: 2014
  4. LEVOTHYROXIN [Concomitant]
     Active Substance: LEVOTHYROXINE
     Dosage: 88 ?G, 1X/DAY
     Dates: start: 2008
  5. PROAIR HFA [Concomitant]
     Active Substance: ALBUTEROL SULFATE
     Dosage: 90 ?G, UNK (AS NEEDED)
  6. QVAR [Concomitant]
     Active Substance: BECLOMETHASONE DIPROPIONATE
     Dosage: 80 MG, 1X/DAY
  7. ANASTROZOLE. [Concomitant]
     Active Substance: ANASTROZOLE
     Dosage: 1 MG, 1X/DAY
     Dates: start: 20120326

REACTIONS (10)
  - Circulatory collapse [Recovered/Resolved]
  - Asthenia [Not Recovered/Not Resolved]
  - Fatigue [Not Recovered/Not Resolved]
  - Tremor [Recovered/Resolved]
  - Parkinsonism [Not Recovered/Not Resolved]
  - Drug withdrawal syndrome [Not Recovered/Not Resolved]
  - Nausea [Recovered/Resolved]
  - Insomnia [Unknown]
  - Malaise [Not Recovered/Not Resolved]
  - Weight decreased [Not Recovered/Not Resolved]

NARRATIVE: CASE EVENT DATE: 20140718
